FAERS Safety Report 25919324 (Version 1)
Quarter: 2025Q4

REPORT INFORMATION
  Report Type: Spontaneous
  Country: US (occurrence: US)
  Receive Date: 20251014
  Receipt Date: 20251014
  Transmission Date: 20260117
  Serious: No
  Sender: COSETTE PHARMACEUTICALS INC
  Company Number: US-COSETTE-CP2025US000990

PATIENT
  Age: 45 Year
  Weight: 170 kg

DRUGS (2)
  1. VYLEESI [Suspect]
     Active Substance: BREMELANOTIDE ACETATE
     Indication: Libido decreased
     Route: 065
     Dates: start: 202505
  2. TESTOSTERONE [Concomitant]
     Active Substance: TESTOSTERONE
     Indication: Product used for unknown indication
     Route: 065

REACTIONS (3)
  - Injection site bruising [Unknown]
  - Injection site pain [Unknown]
  - Injection site pruritus [Unknown]

NARRATIVE: CASE EVENT DATE: 20250921
